FAERS Safety Report 9579978 (Version 2)
Quarter: 2013Q4

REPORT INFORMATION
  Report Type: Spontaneous
  Country: ME (occurrence: ME)
  Receive Date: 20131002
  Receipt Date: 20131118
  Transmission Date: 20140711
  Serious: Yes (Death)
  Sender: FDA-Public Use
  Company Number: ME-ROCHE-1283226

PATIENT
  Age: 59 Year
  Sex: Male
  Weight: 76 kg

DRUGS (6)
  1. MIRCERA [Suspect]
     Indication: NEPHROGENIC ANAEMIA
     Route: 042
     Dates: start: 201212, end: 201308
  2. INSULIN [Concomitant]
     Indication: DIABETES MELLITUS
     Route: 065
     Dates: end: 1993
  3. CALCIUM CARBONATE [Concomitant]
     Route: 065
     Dates: start: 2005
  4. MONOPRIL [Concomitant]
     Route: 065
     Dates: start: 1998
  5. ASPIRIN [Concomitant]
     Route: 065
  6. PRESOLOL [Concomitant]
     Dosage: 2X50 MG/D
     Route: 065

REACTIONS (1)
  - Cardiac arrest [Fatal]
